FAERS Safety Report 6466007-8 (Version None)
Quarter: 2009Q4

REPORT INFORMATION
  Report Type: 
  Country: None (occurrence: None)
  Receive Date: 20091202
  Receipt Date: 20091117
  Transmission Date: 20100525
  Serious: Yes (Hospitalization)
  Sender: FDA-Public Use
  Company Number: GB-TEVA-216117ISR

PATIENT
  Age: 37 Year
  Sex: Male

DRUGS (17)
  1. CIPROFLOXACIN [Suspect]
     Indication: NEUTROPENIC SEPSIS
     Dates: start: 20080101, end: 20080101
  2. CLINDAMYCIN [Suspect]
     Indication: NEUTROPENIC SEPSIS
     Dates: start: 20080101, end: 20080101
  3. CLINDAMYCIN [Suspect]
  4. CLINDAMYCIN [Suspect]
  5. CLINDAMYCIN [Suspect]
  6. GENTAMICIN [Suspect]
     Indication: NEUTROPENIC SEPSIS
     Dates: start: 20080101, end: 20080101
  7. GENTAMICIN [Suspect]
  8. GENTAMICIN [Suspect]
  9. GENTAMICIN [Suspect]
  10. METRONIDAZOLE [Suspect]
     Indication: NEUTROPENIC SEPSIS
     Dates: start: 20080101, end: 20080101
  11. METRONIDAZOLE [Suspect]
  12. METRONIDAZOLE [Suspect]
  13. METRONIDAZOLE [Suspect]
  14. PIPERACILLIN AND TAZOBACTAM [Suspect]
     Indication: NEUTROPENIC SEPSIS
     Dates: start: 20080101, end: 20080101
  15. PIPERACILLIN AND TAZOBACTAM [Suspect]
  16. PIPERACILLIN AND TAZOBACTAM [Suspect]
  17. PIPERACILLIN AND TAZOBACTAM [Suspect]

REACTIONS (3)
  - DRUG RASH WITH EOSINOPHILIA AND SYSTEMIC SYMPTOMS [None]
  - HEPATIC FAILURE [None]
  - RENAL FAILURE [None]
